FAERS Safety Report 15974953 (Version 1)
Quarter: 2019Q1

REPORT INFORMATION
  Report Type: Report from Study
  Country: CA (occurrence: CA)
  Receive Date: 20190218
  Receipt Date: 20190218
  Transmission Date: 20190418
  Serious: Yes (Other)
  Sender: FDA-Public Use
  Company Number: CA-ROCHE-2196930

PATIENT
  Age: 59 Year
  Sex: Female

DRUGS (7)
  1. ESBRIET [Suspect]
     Active Substance: PIRFENIDONE
     Indication: IDIOPATHIC PULMONARY FIBROSIS
     Route: 048
     Dates: start: 20180920
  2. ESBRIET [Suspect]
     Active Substance: PIRFENIDONE
     Dosage: 1869/DAY (3-2-2)
     Route: 048
     Dates: start: 201810
  3. ADVIL [Suspect]
     Active Substance: IBUPROFEN
     Indication: PRODUCT USED FOR UNKNOWN INDICATION
     Dosage: ONGOING
     Route: 065
  4. ESBRIET [Suspect]
     Active Substance: PIRFENIDONE
     Dosage: DAY (2-1-1)
     Route: 048
     Dates: start: 20180927
  5. ESBRIET [Suspect]
     Active Substance: PIRFENIDONE
     Dosage: DAY (2-2-1)
     Route: 048
     Dates: start: 20181004
  6. ESBRIET [Suspect]
     Active Substance: PIRFENIDONE
     Route: 048
     Dates: start: 201811, end: 20190110
  7. ESBRIET [Suspect]
     Active Substance: PIRFENIDONE
     Route: 048
     Dates: end: 20190110

REACTIONS (13)
  - Headache [Unknown]
  - Nausea [Unknown]
  - Lethargy [Unknown]
  - Nausea [Unknown]
  - Decreased appetite [Unknown]
  - Epistaxis [Unknown]
  - Cough [Recovering/Resolving]
  - Epistaxis [Unknown]
  - Asthenia [Not Recovered/Not Resolved]
  - Malaise [Unknown]
  - Weight decreased [Unknown]
  - Decreased appetite [Not Recovered/Not Resolved]
  - Fatigue [Recovering/Resolving]

NARRATIVE: CASE EVENT DATE: 20180920
